FAERS Safety Report 24956483 (Version 5)
Quarter: 2025Q1

REPORT INFORMATION
  Report Type: Spontaneous
  Country: FR (occurrence: FR)
  Receive Date: 20250211
  Receipt Date: 20250312
  Transmission Date: 20250408
  Serious: Yes (Life-Threatening, Other)
  Sender: SANDOZ
  Company Number: None

PATIENT
  Age: 71 Year
  Sex: Male
  Weight: 88 kg

DRUGS (37)
  1. DIPRIVAN [Suspect]
     Active Substance: PROPOFOL
     Indication: Sedation
     Route: 042
     Dates: start: 20250103, end: 20250113
  2. ACUPAN [Suspect]
     Active Substance: NEFOPAM HYDROCHLORIDE
     Indication: Pain
     Dosage: 100 MG, QD
     Route: 042
     Dates: start: 20241231, end: 20250101
  3. ACUPAN [Suspect]
     Active Substance: NEFOPAM HYDROCHLORIDE
     Dosage: 100 MG, QD
     Route: 042
     Dates: start: 20250103, end: 20250104
  4. DIAZEPAM [Suspect]
     Active Substance: DIAZEPAM
     Indication: Anxiety
     Dosage: 40 MG, QD
     Route: 042
     Dates: start: 20250103, end: 20250104
  5. ENOXAPARIN SODIUM [Suspect]
     Active Substance: ENOXAPARIN SODIUM
     Indication: Thrombosis prophylaxis
     Dosage: 0.4 ML, QD
     Route: 058
     Dates: start: 20241230, end: 20250109
  6. ENOXAPARIN SODIUM [Suspect]
     Active Substance: ENOXAPARIN SODIUM
     Indication: Thrombosis prophylaxis
     Dosage: 0.4 ML, QD
     Route: 058
     Dates: start: 20241230, end: 20250109
  7. ERYTHROMYCIN [Suspect]
     Active Substance: ERYTHROMYCIN
     Indication: Impaired gastric emptying
     Dosage: 200 MG, Q6H
     Route: 042
     Dates: start: 20241230, end: 20250103
  8. HEPARIN SODIUM [Suspect]
     Active Substance: HEPARIN SODIUM
     Indication: Thrombosis prophylaxis
     Route: 042
     Dates: start: 20250102, end: 20250115
  9. INSULIN NOS [Suspect]
     Active Substance: INSULIN NOS
     Indication: Type 2 diabetes mellitus
     Route: 042
     Dates: start: 20241230
  10. INSULIN HUMAN [Suspect]
     Active Substance: INSULIN HUMAN
     Indication: Type 2 diabetes mellitus
     Dosage: 100 MG, QD
     Route: 042
     Dates: start: 20241231, end: 20250201
  11. LINEZOLID [Suspect]
     Active Substance: LINEZOLID
     Indication: Lung disorder
     Dosage: 6 G, QD
     Route: 042
     Dates: start: 20250103, end: 20250104
  12. MIDAZOLAM HYDROCHLORIDE [Suspect]
     Active Substance: MIDAZOLAM HYDROCHLORIDE
     Indication: Sedation
     Route: 065
     Dates: start: 20250104, end: 20250109
  13. MIDAZOLAM HYDROCHLORIDE [Suspect]
     Active Substance: MIDAZOLAM HYDROCHLORIDE
     Route: 065
     Dates: start: 20250106
  14. MEROPENEM [Suspect]
     Active Substance: MEROPENEM
     Indication: Lung disorder
     Route: 042
     Dates: start: 20250103, end: 20250111
  15. MICAFUNGIN [Suspect]
     Active Substance: MICAFUNGIN SODIUM
     Indication: Lung disorder
     Dosage: 100 MG, QD
     Route: 042
     Dates: start: 20250103, end: 20250104
  16. MYCAMINE [Suspect]
     Active Substance: MICAFUNGIN SODIUM
     Dosage: 100 MG, QD
     Route: 042
     Dates: start: 20250103, end: 20250104
  17. MYCAMINE [Suspect]
     Active Substance: MICAFUNGIN SODIUM
     Indication: Lung disorder
     Dosage: 100 MG, QD
     Route: 065
     Dates: start: 20250113
  18. NEFOPAM [Suspect]
     Active Substance: NEFOPAM
     Indication: Pain
     Dosage: 100 MG, QD
     Route: 042
     Dates: start: 20241231, end: 20250101
  19. OCTREOTIDE [Suspect]
     Active Substance: OCTREOTIDE
     Indication: Tumour of ampulla of Vater
     Dosage: 100 UG, Q8H
     Route: 058
     Dates: start: 20241230, end: 20250109
  20. OCTREOTIDE [Suspect]
     Active Substance: OCTREOTIDE
     Indication: Antibiotic prophylaxis
     Dosage: 100 UG, Q8H (TID)
     Route: 059
     Dates: start: 20241230, end: 20250109
  21. OXYCODONE [Suspect]
     Active Substance: OXYCODONE
     Indication: Pain
     Dosage: 5 MG, Q6H
     Route: 042
     Dates: start: 20250102, end: 20250103
  22. PANTOPRAZOLE [Suspect]
     Active Substance: PANTOPRAZOLE
     Indication: Prophylaxis against gastrointestinal ulcer
     Dosage: 40 G, QD
     Route: 042
     Dates: end: 20250113
  23. PIPERACILLIN SODIUM\TAZOBACTAM SODIUM [Suspect]
     Active Substance: PIPERACILLIN SODIUM\TAZOBACTAM SODIUM
     Indication: Antibiotic prophylaxis
     Dosage: 12 G, QD
     Route: 042
     Dates: start: 20250101, end: 20250201
  24. PIPERACILLIN SODIUM\TAZOBACTAM SODIUM [Suspect]
     Active Substance: PIPERACILLIN SODIUM\TAZOBACTAM SODIUM
     Indication: Lung disorder
  25. ACETAMINOPHEN [Suspect]
     Active Substance: ACETAMINOPHEN
     Indication: Pain
     Route: 042
     Dates: start: 20241230, end: 20250105
  26. PROPOFOL [Suspect]
     Active Substance: PROPOFOL
     Route: 041
     Dates: start: 20250103, end: 20250113
  27. PROPOFOL [Suspect]
     Active Substance: PROPOFOL
     Indication: Sedation
     Route: 042
     Dates: start: 20250103, end: 20250113
  28. PIPERACILLIN SODIUM\TAZOBACTAM SODIUM [Suspect]
     Active Substance: PIPERACILLIN SODIUM\TAZOBACTAM SODIUM
     Indication: Lung disorder
     Dosage: 12 G, QD
     Route: 042
     Dates: start: 20250101, end: 20250102
  29. AMIODARONE [Concomitant]
     Active Substance: AMIODARONE
     Indication: Product used for unknown indication
     Route: 065
  30. APIXABAN [Concomitant]
     Active Substance: APIXABAN
     Indication: Product used for unknown indication
     Route: 065
  31. BISOPROLOL [Concomitant]
     Active Substance: BISOPROLOL
     Indication: Product used for unknown indication
     Dosage: 1 DF (2.5; 1-0-0)
     Route: 065
  32. INNOVAIR [Concomitant]
     Active Substance: BECLOMETHASONE DIPROPIONATE\FORMOTEROL
     Indication: Product used for unknown indication
     Route: 065
  33. JANUMET [Concomitant]
     Active Substance: METFORMIN HYDROCHLORIDE\SITAGLIPTIN PHOSPHATE
     Indication: Product used for unknown indication
     Route: 065
  34. BENSERAZIDE HYDROCHLORIDE\LEVODOPA [Concomitant]
     Active Substance: BENSERAZIDE HYDROCHLORIDE\LEVODOPA
     Indication: Product used for unknown indication
     Route: 065
  35. REPAGLINIDE [Concomitant]
     Active Substance: REPAGLINIDE
     Indication: Product used for unknown indication
     Dosage: 1 DF, QD (0.5; 1-0-0)
     Route: 065
  36. SPIRIVA [Concomitant]
     Active Substance: TIOTROPIUM BROMIDE MONOHYDRATE
     Indication: Product used for unknown indication
     Dosage: 2 DF, QD (2-0-0)
     Route: 065
  37. ALBUTEROL [Concomitant]
     Active Substance: ALBUTEROL
     Indication: Product used for unknown indication
     Route: 065

REACTIONS (10)
  - Shock haemorrhagic [Recovering/Resolving]
  - Anti factor V antibody [Not Recovered/Not Resolved]
  - Hypoxia [Unknown]
  - Intra-abdominal haemorrhage [Unknown]
  - Hepatic failure [Unknown]
  - Device related infection [Unknown]
  - Cell death [Unknown]
  - Benign recurrent intrahepatic cholestasis [Unknown]
  - Coagulopathy [Unknown]
  - Hypoglycaemia [Unknown]

NARRATIVE: CASE EVENT DATE: 20250107
